FAERS Safety Report 7371373-5 (Version None)
Quarter: 2011Q1

REPORT INFORMATION
  Report Type: 
  Country: None (occurrence: None)
  Receive Date: 20110324
  Receipt Date: 20110316
  Transmission Date: 20110831
  Serious: Yes (Death, Hospitalization, Other)
  Sender: FDA-Public Use
  Company Number: DK-ELI_LILLY_AND_COMPANY-DK201008008935

PATIENT
  Sex: Male
  Weight: 61 kg

DRUGS (4)
  1. PAMOL [Concomitant]
     Indication: PAIN
     Dosage: 500 MG, 2/D
     Route: 048
     Dates: start: 20100405
  2. GEMZAR [Suspect]
     Indication: BLADDER CANCER
     Dosage: 2000 MG, EVERY 1ST AND 8TH DAY
     Route: 042
     Dates: start: 20100528, end: 20100806
  3. CONTALGIN [Concomitant]
     Indication: PAIN
     Dosage: 10 MG, DAILY (1/D)
     Route: 048
     Dates: start: 20100705
  4. PREDNISOLONE [Concomitant]
     Indication: BLADDER CANCER
     Dosage: 25 MG, DAILY (1/D)
     Route: 048
     Dates: start: 20100716, end: 20100825

REACTIONS (3)
  - NEOPLASM MALIGNANT [None]
  - ATELECTASIS [None]
  - PNEUMONITIS [None]
